FAERS Safety Report 17461722 (Version 1)
Quarter: 2020Q1

REPORT INFORMATION
  Report Type: Spontaneous
  Country: US (occurrence: US)
  Receive Date: 20200226
  Receipt Date: 20200226
  Transmission Date: 20200409
  Serious: No
  Sender: FDA-Public Use
  Company Number: None

PATIENT
  Age: 40 Year
  Sex: Female
  Weight: 99 kg

DRUGS (3)
  1. LEVETIRACETAM TABLETS USP [Suspect]
     Active Substance: LEVETIRACETAM
     Indication: SEIZURE
     Dosage: ?          QUANTITY:1 TABLET(S);?
     Route: 048
     Dates: start: 20200112, end: 20200212
  2. NEXIUM [Concomitant]
     Active Substance: ESOMEPRAZOLE MAGNESIUM
  3. DAIY VITAMIN [Concomitant]

REACTIONS (5)
  - Fatigue [None]
  - Fungal infection [None]
  - Anger [None]
  - Vaginal odour [None]
  - Burning sensation [None]

NARRATIVE: CASE EVENT DATE: 20200209
